FAERS Safety Report 5677345-0 (Version None)
Quarter: 2008Q1

REPORT INFORMATION
  Report Type: 
  Country: None (occurrence: None)
  Receive Date: 20080324
  Receipt Date: 20080314
  Transmission Date: 20080703
  Serious: Yes (Death, Hospitalization)
  Sender: FDA-Public Use
  Company Number: GB-JNJFOC-20040902718

PATIENT
  Age: 48 Year
  Sex: Male

DRUGS (3)
  1. IBUPROFEN [Suspect]
     Indication: DRUG USE FOR UNKNOWN INDICATION
  2. PARACETAMOL [Suspect]
  3. PARACETAMOL [Suspect]
     Indication: DRUG USE FOR UNKNOWN INDICATION

REACTIONS (12)
  - ACUTE HEPATIC FAILURE [None]
  - COMPLETED SUICIDE [None]
  - DRUG TOXICITY [None]
  - HEPATIC NECROSIS [None]
  - HEPATOCELLULAR INJURY [None]
  - INTENTIONAL OVERDOSE [None]
  - LOSS OF CONSCIOUSNESS [None]
  - NEPHRITIS INTERSTITIAL [None]
  - PNEUMONIA ASPIRATION [None]
  - RENAL FAILURE ACUTE [None]
  - SUICIDE ATTEMPT [None]
  - WEIGHT DECREASED [None]
